FAERS Safety Report 4329798-8 (Version None)
Quarter: 2004Q1

REPORT INFORMATION
  Report Type: 
  Country: None (occurrence: None)
  Receive Date: 20040329
  Receipt Date: 20040316
  Transmission Date: 20041129
  Serious: Yes (Other)
  Sender: FDA-Public Use
  Company Number: US067149

PATIENT
  Age: 20 Year
  Sex: Male
  Weight: 68 kg

DRUGS (2)
  1. ARANESP [Suspect]
     Indication: DIALYSIS
     Dosage: 50 MCG, 1 IN 1 WEEKS, IV
     Route: 042
     Dates: start: 20030211, end: 20031005
  2. ERYTHROPOIETIN HUMAN [Suspect]
     Dosage: SC
     Route: 058
     Dates: start: 20011201, end: 20030201

REACTIONS (10)
  - BLOOD PARATHYROID HORMONE INCREASED [None]
  - BONE MARROW DEPRESSION [None]
  - DISEASE RECURRENCE [None]
  - DRUG SPECIFIC ANTIBODY PRESENT [None]
  - HYPERTENSION [None]
  - HYPOPLASTIC ANAEMIA [None]
  - INJECTION SITE PAIN [None]
  - PERITONITIS [None]
  - PULMONARY OEDEMA [None]
  - TREATMENT NONCOMPLIANCE [None]
